FAERS Safety Report 10574624 (Version 1)
Quarter: 2014Q4

REPORT INFORMATION
  Report Type: Spontaneous
  Country: NL (occurrence: NL)
  Receive Date: 20141110
  Receipt Date: 20141110
  Transmission Date: 20150529
  Serious: Yes (Hospitalization)
  Sender: FDA-Public Use
  Company Number: NL-MYLANLABS-2014M1009468

PATIENT

DRUGS (3)
  1. ACENOCOUMAROL [Suspect]
     Active Substance: ACENOCOUMAROL
     Indication: EMBOLISM
     Route: 065
  2. DICLOFENAC [Suspect]
     Active Substance: DICLOFENAC
     Dosage: 3X50MG
     Route: 065
  3. CLEXANE [Suspect]
     Active Substance: ENOXAPARIN SODIUM
     Dosage: (CONC: 100 MG/ML) 0.8ML TWICE DAILY
     Route: 065

REACTIONS (1)
  - Procedural haemorrhage [Unknown]
